FAERS Safety Report 7475448-1 (Version None)
Quarter: 2011Q2

REPORT INFORMATION
  Report Type: 
  Country: None (occurrence: None)
  Receive Date: 20110512
  Receipt Date: 20110506
  Transmission Date: 20111010
  Serious: Yes (Hospitalization)
  Sender: FDA-Public Use
  Company Number: FR-PFIZER INC-2011097506

PATIENT
  Age: 77 Year
  Sex: Male

DRUGS (12)
  1. INSPRA [Suspect]
     Indication: CARDIAC FAILURE
     Dosage: 25 MG, 1X/DAY
     Route: 048
     Dates: end: 20110126
  2. RAMIPRIL [Suspect]
     Indication: HYPERTENSION
     Dosage: 10 MG, 1X/DAY
     Route: 048
     Dates: end: 20110126
  3. LEVOTHYROXINE SODIUM [Concomitant]
     Dosage: 25 MG, 1X/DAY
  4. CRESTOR [Concomitant]
     Dosage: 5 MG, 1X/DAY
  5. COLCHICINE [Suspect]
     Indication: GOUT
     Dosage: 1 DF, UNK
     Route: 048
     Dates: start: 20110121, end: 20110126
  6. NEXIUM [Concomitant]
     Dosage: 20 MG, 1X/DAY
  7. BISOPROLOL [Concomitant]
     Dosage: 5 MG, 1X/DAY
  8. LASIX [Suspect]
     Indication: HYPERTENSION
     Dosage: 250 MG A DAY
     Route: 048
     Dates: end: 20110121
  9. ASPIRIN [Concomitant]
     Dosage: 75 MG, 1X/DAY
  10. RAMIPRIL [Suspect]
     Dosage: 5 MG, 1X/DAY
     Route: 048
     Dates: start: 20110121, end: 20110126
  11. PLAVIX [Concomitant]
     Dosage: 1 DF
  12. ZOLPIDEM [Concomitant]
     Dosage: 10 MG, 1X/DAY

REACTIONS (4)
  - ANAEMIA [None]
  - RENAL FAILURE [None]
  - DIARRHOEA [None]
  - LEUKOPENIA [None]
